FAERS Safety Report 11525586 (Version 1)
Quarter: 2015Q3

REPORT INFORMATION
  Report Type: Spontaneous
  Country: GB (occurrence: GB)
  Receive Date: 20150918
  Receipt Date: 20150918
  Transmission Date: 20151125
  Serious: Yes (Other)
  Sender: FDA-Public Use
  Company Number: GB-COL_20525_2015

PATIENT
  Age: 77 Year
  Sex: Female

DRUGS (6)
  1. DICLOFENAC [Concomitant]
     Active Substance: DICLOFENAC
     Dosage: NI/NI
  2. STEMETIL [Concomitant]
     Active Substance: PROCHLORPERAZINE MALEATE
     Dosage: NI/NI
  3. PENICILLIN [Concomitant]
     Active Substance: PENICILLIN
  4. ASPIRIN. [Concomitant]
     Active Substance: ASPIRIN
     Dosage: NI/NI
  5. FLUCLOXACILLIN [Concomitant]
     Active Substance: FLUCLOXACILLIN
  6. COLGATE DURAPHAT [Suspect]
     Active Substance: SODIUM FLUORIDE
     Indication: SENSITIVITY OF TEETH
     Dosage: A SMALL AMOUNT/BID/
     Route: 048
     Dates: start: 20150730, end: 20150731

REACTIONS (3)
  - Dysgeusia [Recovered/Resolved]
  - Tongue coated [Recovered/Resolved]
  - Tooth injury [Not Recovered/Not Resolved]

NARRATIVE: CASE EVENT DATE: 20150730
